FAERS Safety Report 10840304 (Version 1)
Quarter: 2015Q1

REPORT INFORMATION
  Report Type: Spontaneous
  Country: US (occurrence: US)
  Receive Date: 20150220
  Receipt Date: 20150220
  Transmission Date: 20150721
  Serious: No
  Sender: FDA-Public Use
  Company Number: US-ABBVIE-14P-163-1235728-00

PATIENT
  Sex: Male
  Weight: 98.52 kg

DRUGS (1)
  1. HUMIRA [Suspect]
     Active Substance: ADALIMUMAB
     Indication: COLITIS ULCERATIVE
     Route: 058
     Dates: start: 20140127

REACTIONS (3)
  - Liver function test abnormal [Unknown]
  - Hepatic enzyme increased [Unknown]
  - Nausea [Unknown]
